FAERS Safety Report 5076125-7 (Version None)
Quarter: 2006Q3

REPORT INFORMATION
  Report Type: 
  Country: None (occurrence: None)
  Receive Date: 20060804
  Receipt Date: 20060727
  Transmission Date: 20061208
  Serious: Yes (Hospitalization)
  Sender: FDA-Public Use
  Company Number: 230464K06CAN

PATIENT
  Sex: Male

DRUGS (6)
  1. REBIF [Suspect]
     Indication: MULTIPLE SCLEROSIS
     Dates: start: 20050718
  2. BACLOFEN [Concomitant]
  3. LORAZEPAM [Concomitant]
  4. ALL OTHER THERAPEUTIC PRODUCTS [Concomitant]
  5. VITACAL [Concomitant]
  6. CALCIUM W/MAGNESIUM [Concomitant]

REACTIONS (7)
  - DEPRESSION [None]
  - GAIT DISTURBANCE [None]
  - MOBILITY DECREASED [None]
  - TEMPERATURE INTOLERANCE [None]
  - THERAPY NON-RESPONDER [None]
  - TREMOR [None]
  - VERTIGO [None]
